FAERS Safety Report 16749890 (Version 1)
Quarter: 2019Q3

REPORT INFORMATION
  Report Type: Spontaneous
  Country: AU (occurrence: AU)
  Receive Date: 20190828
  Receipt Date: 20190828
  Transmission Date: 20191005
  Serious: Yes (Other)
  Sender: FDA-Public Use
  Company Number: PHHY2019AU197282

PATIENT

DRUGS (4)
  1. KISQALI [Suspect]
     Active Substance: RIBOCICLIB
     Indication: PRODUCT USED FOR UNKNOWN INDICATION
     Dosage: UNK
     Route: 065
     Dates: start: 20181220, end: 201901
  2. LETROZOLE. [Suspect]
     Active Substance: LETROZOLE
     Indication: PRODUCT USED FOR UNKNOWN INDICATION
     Dosage: UNK
     Route: 065
     Dates: start: 20181220
  3. KISQALI [Suspect]
     Active Substance: RIBOCICLIB
     Dosage: 200 MG, QD
     Route: 065
     Dates: start: 20190403, end: 20190411
  4. KISQALI [Suspect]
     Active Substance: RIBOCICLIB
     Dosage: 400 MG, UNK
     Route: 065
     Dates: start: 20190221

REACTIONS (1)
  - Hepatotoxicity [Unknown]
